FAERS Safety Report 8427131-3 (Version None)
Quarter: 2012Q2

REPORT INFORMATION
  Report Type: 
  Country: None (occurrence: None)
  Receive Date: 20120611
  Receipt Date: 20120606
  Transmission Date: 20120825
  Serious: Yes (Death, Hospitalization)
  Sender: FDA-Public Use
  Company Number: US-CELGENEUS-163-21880-12051551

PATIENT
  Sex: Male
  Weight: 95.4 kg

DRUGS (12)
  1. LASIX [Concomitant]
     Route: 065
  2. TEMAZOLIN [Concomitant]
     Dosage: 0.4
     Route: 065
  3. ATENOLOL [Concomitant]
     Dosage: 25 MILLIGRAM
     Route: 065
  4. LEVOTHYROXINE SODIUM [Concomitant]
     Dosage: 175 MICROGRAM
     Route: 065
  5. REVLIMID [Suspect]
     Indication: NON-HODGKIN'S LYMPHOMA
     Dosage: 15 MILLIGRAM
     Route: 048
     Dates: start: 20120501, end: 20120508
  6. OXYCODONE HCL [Concomitant]
     Dosage: 5 MILLIGRAM
     Route: 065
  7. NITRIOL [Concomitant]
     Route: 065
  8. CARVEDILOL [Concomitant]
     Route: 065
  9. LEVAQUIN [Concomitant]
     Dosage: 750 MILLIGRAM
     Route: 065
  10. VALACYCLOVIR [Concomitant]
     Dosage: 1 GRAM
     Route: 065
  11. IMDUR SR [Concomitant]
     Dosage: 35 MILLIGRAM
     Route: 065
  12. SIMVASTATIN [Concomitant]
     Route: 065

REACTIONS (2)
  - DEATH [None]
  - CHEST PAIN [None]
